FAERS Safety Report 15689230 (Version 1)
Quarter: 2018Q4

REPORT INFORMATION
  Report Type: Spontaneous
  Country: US (occurrence: US)
  Receive Date: 20181205
  Receipt Date: 20181205
  Transmission Date: 20190205
  Serious: Yes (Hospitalization, Other)
  Sender: FDA-Public Use
  Company Number: US-GLAXOSMITHKLINE-US2018216838

PATIENT
  Age: 47 Year
  Sex: Female

DRUGS (3)
  1. MEDROL DOSE PACK [Concomitant]
     Active Substance: METHYLPREDNISOLONE
  2. TESSALON [Concomitant]
     Active Substance: BENZONATATE
  3. NUCALA [Suspect]
     Active Substance: MEPOLIZUMAB
     Indication: ASTHMA
     Dosage: UNK
     Route: 042

REACTIONS (9)
  - Asthma [Unknown]
  - Dyspnoea [Not Recovered/Not Resolved]
  - Chest discomfort [Not Recovered/Not Resolved]
  - Drug ineffective [Unknown]
  - Muscle rupture [Not Recovered/Not Resolved]
  - Productive cough [Not Recovered/Not Resolved]
  - Adverse event [Unknown]
  - Cough [Recovering/Resolving]
  - Wheezing [Unknown]

NARRATIVE: CASE EVENT DATE: 201811
